FAERS Safety Report 24277892 (Version 3)
Quarter: 2024Q4

REPORT INFORMATION
  Report Type: Report from Study
  Country: AR (occurrence: AR)
  Receive Date: 20240903
  Receipt Date: 20241011
  Transmission Date: 20250114
  Serious: Yes (Other)
  Sender: ABBVIE
  Company Number: AR-ABBVIE-5904837

PATIENT
  Age: 58 Year
  Sex: Female

DRUGS (1)
  1. RINVOQ [Suspect]
     Active Substance: UPADACITINIB
     Indication: Rheumatoid arthritis
     Dosage: FORM STRENGTH: 15 MILLIGRAM?DOSE FORM: MODIFIED-RELEASE FILM-COATED TABLET
     Route: 048
     Dates: start: 20210501

REACTIONS (1)
  - Adenoma benign [Recovered/Resolved]

NARRATIVE: CASE EVENT DATE: 20240815
